FAERS Safety Report 11749206 (Version 2)
Quarter: 2015Q4

REPORT INFORMATION
  Report Type: Spontaneous
  Country: US (occurrence: US)
  Receive Date: 20151118
  Receipt Date: 20151130
  Transmission Date: 20160304
  Serious: Yes (Other)
  Sender: FDA-Public Use
  Company Number: US-BEH-2015055795

PATIENT
  Sex: Female
  Weight: 121 kg

DRUGS (28)
  1. ALLEGRA [Concomitant]
     Active Substance: FEXOFENADINE HYDROCHLORIDE
  2. DIPHENHYDRAMINE. [Concomitant]
     Active Substance: DIPHENHYDRAMINE
  3. NEXIUM [Concomitant]
     Active Substance: ESOMEPRAZOLE MAGNESIUM
  4. MONTELUKAST [Concomitant]
     Active Substance: MONTELUKAST SODIUM
  5. FLUOXETINE [Concomitant]
     Active Substance: FLUOXETINE HYDROCHLORIDE
  6. PRIVIGEN [Suspect]
     Active Substance: HUMAN IMMUNOGLOBULIN G
     Indication: CHRONIC INFLAMMATORY DEMYELINATING POLYRADICULONEUROPATHY
     Dosage: 20 GM VIALS
     Route: 042
  7. HEPARIN [Concomitant]
     Active Substance: HEPARIN SODIUM
  8. ASPIRIN. [Concomitant]
     Active Substance: ASPIRIN
  9. MOMETASONE FUROATE. [Concomitant]
     Active Substance: MOMETASONE FUROATE
  10. MAGNESIUM [Concomitant]
     Active Substance: MAGNESIUM
  11. SODIUM CHLORIDE. [Concomitant]
     Active Substance: SODIUM CHLORIDE
  12. ALEVE [Concomitant]
     Active Substance: NAPROXEN SODIUM
  13. VITAMIN D2 [Concomitant]
     Active Substance: ERGOCALCIFEROL
  14. CYANOCOBALAMIN. [Concomitant]
     Active Substance: CYANOCOBALAMIN
  15. ACETAMINOPHEN. [Concomitant]
     Active Substance: ACETAMINOPHEN
  16. METHOTREXATE [Concomitant]
     Active Substance: METHOTREXATE
  17. DIAZEPAM. [Concomitant]
     Active Substance: DIAZEPAM
  18. NYSTATIN. [Concomitant]
     Active Substance: NYSTATIN
  19. HYDROXYCHLOROQUINE SULFATE. [Concomitant]
     Active Substance: HYDROXYCHLOROQUINE SULFATE
  20. CELECOXIB. [Concomitant]
     Active Substance: CELECOXIB
  21. PROVENTIL [Concomitant]
     Active Substance: ALBUTEROL
  22. SPIRONOLACTONE. [Concomitant]
     Active Substance: SPIRONOLACTONE
  23. OLANZAPINE. [Concomitant]
     Active Substance: OLANZAPINE
  24. FOLIC ACID. [Concomitant]
     Active Substance: FOLIC ACID
  25. EPIPEN [Concomitant]
     Active Substance: EPINEPHRINE
  26. PHENTERMINE. [Concomitant]
     Active Substance: PHENTERMINE
  27. FLUCONAZOLE. [Concomitant]
     Active Substance: FLUCONAZOLE
  28. FAMOTIDINE. [Concomitant]
     Active Substance: FAMOTIDINE

REACTIONS (3)
  - Headache [Unknown]
  - Thrombosis [Unknown]
  - Pruritus [Unknown]
